FAERS Safety Report 6106114-2 (Version None)
Quarter: 2009Q1

REPORT INFORMATION
  Report Type: 
  Country: None (occurrence: None)
  Receive Date: 20090306
  Receipt Date: 20090220
  Transmission Date: 20090719
  Serious: Yes (Other)
  Sender: FDA-Public Use
  Company Number: PHHY2009DE06577

PATIENT
  Age: 49 Year
  Sex: Male

DRUGS (5)
  1. DIOVAN [Suspect]
     Dosage: UNK
     Route: 048
     Dates: start: 20070901, end: 20090221
  2. ASPIRIN [Concomitant]
     Dosage: UNK
     Route: 048
     Dates: start: 20070901
  3. STATIN [Concomitant]
     Dosage: UNK
     Route: 048
     Dates: start: 20070901, end: 20080101
  4. AMLODIPINE [Concomitant]
     Dosage: UNK
     Route: 048
     Dates: start: 20070901
  5. MEDAN [Concomitant]

REACTIONS (2)
  - BLOOD CREATINE PHOSPHOKINASE INCREASED [None]
  - MYALGIA [None]
